FAERS Safety Report 5342514-6 (Version None)
Quarter: 2007Q2

REPORT INFORMATION
  Report Type: 
  Country: None (occurrence: None)
  Receive Date: 20070601
  Receipt Date: 20070522
  Transmission Date: 20071010
  Serious: Yes (Hospitalization, Disabling)
  Sender: FDA-Public Use
  Company Number: GB-BAUSCH-2007BL001693

PATIENT
  Age: 62 Year
  Sex: Male

DRUGS (4)
  1. PREDNISOLONE SODIUM PHOSPHATE [Suspect]
     Indication: ASTHMA
     Route: 048
  2. CIPROFLOXACIN [Suspect]
     Indication: LOWER RESPIRATORY TRACT INFECTION
     Route: 048
  3. SALBUTAMOL [Concomitant]
     Route: 049
  4. BECLOMETHASONE DIPROPIONATE [Concomitant]
     Route: 049

REACTIONS (1)
  - TENDON RUPTURE [None]
